FAERS Safety Report 25051076 (Version 1)
Quarter: 2025Q1

REPORT INFORMATION
  Report Type: Report from Study
  Country: US (occurrence: US)
  Receive Date: 20250307
  Receipt Date: 20250307
  Transmission Date: 20250409
  Serious: Yes (Other)
  Sender: NOVARTIS
  Company Number: US-002147023-NVSC2025US037652

PATIENT
  Sex: Female

DRUGS (1)
  1. KISQALI [Suspect]
     Active Substance: RIBOCICLIB
     Indication: Product used for unknown indication
     Dosage: 400 MG, BID
     Route: 048

REACTIONS (4)
  - Cerebrovascular accident [Unknown]
  - Vision blurred [Unknown]
  - Nausea [Unknown]
  - Disorientation [Unknown]
